FAERS Safety Report 23859859 (Version 1)
Quarter: 2024Q2

REPORT INFORMATION
  Report Type: Spontaneous
  Country: CN (occurrence: CN)
  Receive Date: 20240515
  Receipt Date: 20240515
  Transmission Date: 20240716
  Serious: Yes (Hospitalization, Disabling)
  Sender: FDA-Public Use
  Company Number: CN-GILEAD-2024-0672556

PATIENT
  Age: 65 Year
  Sex: Male
  Weight: 55 kg

DRUGS (5)
  1. BIKTARVY [Suspect]
     Active Substance: BICTEGRAVIR SODIUM\EMTRICITABINE\TENOFOVIR ALAFENAMIDE FUMARATE
     Indication: Acquired immunodeficiency syndrome
     Dosage: 1 DOSAGE FORM, QD
     Route: 048
     Dates: start: 20240320, end: 20240417
  2. VITAMIN C [Concomitant]
     Active Substance: ASCORBIC ACID
  3. PHOSPHOLIPID [Concomitant]
     Active Substance: PHOSPHOLIPID
     Dosage: 930 MG
     Route: 042
  4. TIPRON [Concomitant]
     Dosage: 0.2 DOSAGE FORM, QD
     Route: 042
  5. BICYCLOL [Concomitant]
     Active Substance: BICYCLOL
     Dosage: 50 MG, QD
     Route: 042

REACTIONS (1)
  - Hepatic function abnormal [Recovering/Resolving]

NARRATIVE: CASE EVENT DATE: 20240417
